FAERS Safety Report 16141055 (Version 1)
Quarter: 2019Q1

REPORT INFORMATION
  Report Type: Spontaneous
  Country: US (occurrence: US)
  Receive Date: 20190226
  Receipt Date: 20190226
  Transmission Date: 20190418
  Serious: Yes (Hospitalization)
  Sender: FDA-Public Use
  Company Number: None

PATIENT
  Age: 62 Year
  Sex: Male

DRUGS (1)
  1. ABIRATERONE 250MG TAB [Suspect]
     Active Substance: ABIRATERONE
     Indication: RECTOSIGMOID CANCER
     Route: 048
     Dates: start: 20190201

REACTIONS (2)
  - Chest pain [None]
  - Gastric pH decreased [None]

NARRATIVE: CASE EVENT DATE: 20190218
